FAERS Safety Report 8025822-X (Version None)
Quarter: 2012Q1

REPORT INFORMATION
  Report Type: 
  Country: None (occurrence: None)
  Receive Date: 20120105
  Receipt Date: 20110411
  Transmission Date: 20120608
  Serious: No
  Sender: FDA-Public Use
  Company Number: US-ABBOTT-11P-163-0714585-00

PATIENT
  Sex: Female
  Weight: 93.07 kg

DRUGS (2)
  1. CRESTOR [Suspect]
     Indication: PRODUCT USED FOR UNKNOWN INDICATION
  2. SYNTHROID [Suspect]
     Indication: RADIOACTIVE IODINE THERAPY
     Dates: start: 19700101

REACTIONS (6)
  - HEART RATE DECREASED [None]
  - BRONCHITIS [None]
  - ASTHENIA [None]
  - PALPITATIONS [None]
  - FATIGUE [None]
  - PRODUCT TASTE ABNORMAL [None]
